FAERS Safety Report 5874574-8 (Version None)
Quarter: 2008Q3

REPORT INFORMATION
  Report Type: 
  Country: None (occurrence: None)
  Receive Date: 20080909
  Receipt Date: 20080904
  Transmission Date: 20090109
  Serious: Yes (Life-Threatening)
  Sender: FDA-Public Use
  Company Number: PHHY2008GB20190

PATIENT
  Age: 52 Year
  Sex: Male

DRUGS (5)
  1. TERBINAFINE HCL [Suspect]
     Indication: ONYCHOMYCOSIS
     Dosage: 250 MG UNK
     Dates: start: 20080604, end: 20080815
  2. AMITRIPTYLINE HCL [Concomitant]
  3. ASPIRIN [Concomitant]
  4. BISOPROLOL FUMARATE [Concomitant]
  5. RAMIPRIL [Concomitant]

REACTIONS (1)
  - PULMONARY EMBOLISM [None]
